FAERS Safety Report 23217663 (Version 1)
Quarter: 2023Q4

REPORT INFORMATION
  Report Type: Spontaneous
  Country: US (occurrence: US)
  Receive Date: 20231122
  Receipt Date: 20231122
  Transmission Date: 20240110
  Serious: No
  Sender: FDA-Public Use
  Company Number: US-SA-SAC20231116001401

PATIENT
  Age: 63 Year
  Sex: Male

DRUGS (2)
  1. ALPROLIX [Suspect]
     Active Substance: EFTRENONACOG ALFA
     Indication: Factor IX deficiency
     Dosage: 6350 UNITS (5715-6985) SLOW IV PUSH EVERY 10 DAYS FOR PROPHYLAXIS
     Route: 042
     Dates: start: 202303
  2. ALPROLIX [Suspect]
     Active Substance: EFTRENONACOG ALFA
     Indication: Factor IX deficiency
     Dosage: 6350 UNITS (5715-6985) SLOW IV PUSH EVERY 10 DAYS FOR PROPHYLAXIS
     Route: 042
     Dates: start: 202303

REACTIONS (1)
  - Haemorrhage [Unknown]

NARRATIVE: CASE EVENT DATE: 20230101
